FAERS Safety Report 5669753-9 (Version None)
Quarter: 2008Q1

REPORT INFORMATION
  Report Type: 
  Country: None (occurrence: None)
  Receive Date: 20080317
  Receipt Date: 20080310
  Transmission Date: 20080703
  Serious: Yes (Hospitalization)
  Sender: FDA-Public Use
  Company Number: JP-WYE-H03077008

PATIENT
  Age: 77 Year
  Sex: Female

DRUGS (1)
  1. HYPEN [Suspect]
     Dosage: UNKNOWN
     Route: 048

REACTIONS (1)
  - ULCER HAEMORRHAGE [None]
